FAERS Safety Report 16505259 (Version 1)
Quarter: 2019Q3

REPORT INFORMATION
  Report Type: Report from Study
  Country: FR (occurrence: FR)
  Receive Date: 20190701
  Receipt Date: 20190701
  Transmission Date: 20191004
  Serious: Yes (Death, Hospitalization)
  Sender: FDA-Public Use
  Company Number: FR-BAYER-2019-124152

PATIENT
  Age: 79 Year
  Sex: Male

DRUGS (9)
  1. PLATELETS [Concomitant]
     Active Substance: HUMAN PLATELET, ALLOGENIC
     Indication: PLATELET TRANSFUSION
     Dosage: 600, UNK
     Route: 065
  2. TRASYLOL [Suspect]
     Active Substance: APROTININ
     Indication: MITRAL VALVE REPLACEMENT
     Dosage: 350 MILLILITRE TOTAL
     Route: 065
     Dates: start: 20190303, end: 20190303
  3. ASPIRIN [ACETYLSALICYLIC ACID] [Concomitant]
     Active Substance: ASPIRIN
     Indication: ANTIPLATELET THERAPY
     Dosage: UNK
     Route: 065
  4. PROTHROMBIN COMPLEX CONCENTRATE NOS [Concomitant]
     Active Substance: COAGULATION FACTOR IX HUMAN\COAGULATION FACTOR VII HUMAN\COAGULATION FACTOR X HUMAN\PROTHROMBIN
     Indication: HAEMORRHAGE
     Dosage: 1000, UNK
     Route: 065
     Dates: start: 201903
  5. HEPARIN [Concomitant]
     Active Substance: HEPARIN SODIUM
     Indication: ANTICOAGULANT THERAPY
     Dosage: TOTAL HEPARIN DOSAGE DURING SURGERY = 34
     Route: 065
     Dates: start: 20190303, end: 20190303
  6. FRESH FROZEN PLASMA [Concomitant]
     Active Substance: HUMAN PLASMA
     Indication: TRANSFUSION
     Dosage: 1000, UNK
     Dates: start: 201903
  7. RED BLOOD CELLS [Concomitant]
     Active Substance: HUMAN RED BLOOD CELL
     Indication: PACKED RED BLOOD CELL TRANSFUSION
     Dosage: 1200, UNK
     Route: 065
     Dates: start: 201903
  8. FIBRINOGEN [Concomitant]
     Active Substance: FIBRINOGEN HUMAN
     Indication: HAEMORRHAGE
     Dosage: 2, UNK
     Route: 065
     Dates: start: 201903
  9. FACTOR VIIA, RECOMBINANT [Concomitant]
     Active Substance: COAGULATION FACTOR VIIA RECOMBINANT HUMAN
     Indication: HAEMORRHAGE PROPHYLAXIS
     Dosage: UNK
     Route: 065
     Dates: start: 20190303

REACTIONS (2)
  - Blood creatinine increased [Recovered/Resolved]
  - Product use in unapproved indication [Recovered/Resolved]

NARRATIVE: CASE EVENT DATE: 20190303
